FAERS Safety Report 22237439 (Version 1)
Quarter: 2023Q2

REPORT INFORMATION
  Report Type: Other
  Country: US (occurrence: None)
  Receive Date: 20230421
  Receipt Date: 20230421
  Transmission Date: 20230722
  Serious: Yes (Other)
  Sender: FDA-Public Use
  Company Number: US-ROCHE-3330816

PATIENT
  Age: 52 Year
  Sex: Female
  Weight: 89.81 kg

DRUGS (12)
  1. OCREVUS [Suspect]
     Active Substance: OCRELIZUMAB
     Indication: Relapsing-remitting multiple sclerosis
     Route: 042
  2. CYCLOBENZAPRINE [Concomitant]
     Active Substance: CYCLOBENZAPRINE
  3. ADDERALL [Concomitant]
     Active Substance: AMPHETAMINE ASPARTATE\AMPHETAMINE SULFATE\DEXTROAMPHETAMINE SACCHARATE\DEXTROAMPHETAMINE SULFATE
  4. MS CONTIN [Concomitant]
     Active Substance: MORPHINE SULFATE
  5. PERCOCET [Concomitant]
     Active Substance: ACETAMINOPHEN\OXYCODONE HYDROCHLORIDE
  6. ATIVAN [Concomitant]
     Active Substance: LORAZEPAM
  7. ZANAFLEX [Concomitant]
     Active Substance: TIZANIDINE HYDROCHLORIDE
  8. CELEBREX [Concomitant]
     Active Substance: CELECOXIB
  9. NEURONTIN [Concomitant]
     Active Substance: GABAPENTIN
  10. MELOXICAM [Concomitant]
     Active Substance: MELOXICAM
  11. DICLOFENAC [Concomitant]
     Active Substance: DICLOFENAC
  12. CYMBALTA [Concomitant]
     Active Substance: DULOXETINE HYDROCHLORIDE

REACTIONS (14)
  - Pain [Unknown]
  - Carpal tunnel syndrome [Unknown]
  - Amnesia [Unknown]
  - Myalgia [Unknown]
  - Myelitis transverse [Unknown]
  - Infection [Unknown]
  - Paraesthesia [Unknown]
  - Urinary tract infection [Unknown]
  - Dizziness [Unknown]
  - Cervical radiculopathy [Unknown]
  - Spinal disorder [Unknown]
  - Depression [Unknown]
  - Vestibular disorder [Unknown]
  - Spinal osteoarthritis [Unknown]
